FAERS Safety Report 8354453-7 (Version None)
Quarter: 2012Q2

REPORT INFORMATION
  Report Type: 
  Country: None (occurrence: None)
  Receive Date: 20120511
  Receipt Date: 20120509
  Transmission Date: 20120825
  Serious: Yes (Death)
  Sender: FDA-Public Use
  Company Number: TW-ASTRAZENECA-2012SE29770

PATIENT
  Age: 86 Year
  Sex: Female

DRUGS (2)
  1. QUETIAPINE FUMARATE [Suspect]
     Indication: RESTLESSNESS
     Route: 048
     Dates: start: 20120115
  2. QUETIAPINE FUMARATE [Suspect]
     Indication: ANXIETY
     Route: 048
     Dates: start: 20120115

REACTIONS (2)
  - PNEUMONIA ASPIRATION [None]
  - COMA [None]
